FAERS Safety Report 8236431-1 (Version None)
Quarter: 2012Q1

REPORT INFORMATION
  Report Type: 
  Country: None (occurrence: None)
  Receive Date: 20120327
  Receipt Date: 20120321
  Transmission Date: 20120608
  Serious: Yes (Other)
  Sender: FDA-Public Use
  Company Number: US-PFIZER INC-2012049742

PATIENT
  Sex: Male
  Weight: 113.38 kg

DRUGS (7)
  1. SUTENT [Suspect]
     Dosage: 50 MG, UNK
     Dates: start: 20120314
  2. COUMADIN [Concomitant]
     Dosage: 5 MG, (DAILY)
  3. SUTENT [Suspect]
     Indication: METASTATIC RENAL CELL CARCINOMA
     Dosage: 50 MG, 1 CAPSULE DAILY
     Dates: start: 20120220
  4. SYMBICORT [Concomitant]
     Dosage: UNK, (DAILY)
  5. SUTENT [Suspect]
     Dosage: 50 MG, UNK
     Dates: start: 20120302
  6. COUMADIN [Concomitant]
     Dosage: 7.5 MG, ALTERNATE DAY (EVERY OTHER DAY)
  7. COUMADIN [Concomitant]
     Indication: PULMONARY EMBOLISM
     Dosage: UNK
     Dates: end: 20120219

REACTIONS (9)
  - HAEMATURIA [None]
  - RENAL PAIN [None]
  - INCREASED APPETITE [None]
  - HAEMORRHAGE [None]
  - DYSGEUSIA [None]
  - BODY HEIGHT DECREASED [None]
  - FATIGUE [None]
  - BLOOD URINE PRESENT [None]
  - GLOSSODYNIA [None]
